FAERS Safety Report 4453744-X (Version None)
Quarter: 2004Q3

REPORT INFORMATION
  Report Type: 
  Country: None (occurrence: None)
  Receive Date: 20040920
  Receipt Date: 20040907
  Transmission Date: 20050211
  Serious: Yes (Other)
  Sender: FDA-Public Use
  Company Number: 200416739US

PATIENT
  Sex: Female

DRUGS (4)
  1. TAXOTERE [Suspect]
     Indication: BREAST CANCER METASTATIC
  2. HERCEPTIN [Concomitant]
     Dosage: DOSE: NOT PROVIDED
  3. AREDIA [Concomitant]
     Dosage: DOSE: NOT PROVIDED
  4. UNKNOWN DRUG [Concomitant]
     Dosage: DOSE: NOT PROVIDED

REACTIONS (2)
  - CRYPTOGENIC ORGANIZING PNEUMONIA [None]
  - PLEURAL EFFUSION [None]
